FAERS Safety Report 11604995 (Version 3)
Quarter: 2015Q4

REPORT INFORMATION
  Report Type: Spontaneous
  Country: US (occurrence: US)
  Receive Date: 20151007
  Receipt Date: 20151117
  Transmission Date: 20160304
  Serious: Yes (Death, Hospitalization, Other)
  Sender: FDA-Public Use
  Company Number: US-PFIZER INC-2015331058

PATIENT
  Age: 57 Year
  Sex: Female
  Weight: 64 kg

DRUGS (17)
  1. LOPRESSOR [Concomitant]
     Active Substance: METOPROLOL TARTRATE
     Dosage: 50 MG, DAILY (25MG; 2 IN AM) 6:00 AM AND 6:00PM MED
  2. COUMADIN [Concomitant]
     Active Substance: WARFARIN SODIUM
     Dosage: 2.5 MG, UNK (TUES, WED, THURS, FRI, SAT AND SUN)
  3. ALBUTEROL. [Concomitant]
     Active Substance: ALBUTEROL
     Indication: ASTHMA
     Dosage: 0.083 %, AS NEEDED
     Route: 055
  4. PACERONE [Concomitant]
     Active Substance: AMIODARONE HYDROCHLORIDE
     Dosage: UNK, DAILY (300MG; 1 1/2 A DAY)6:00 AM MEDS
  5. REQUIP [Concomitant]
     Active Substance: ROPINIROLE HYDROCHLORIDE
     Dosage: 1 MG, DAILY (1 AT 2:00 PM)
  6. POTASSIUM CL [Concomitant]
     Active Substance: POTASSIUM CHLORIDE
     Dosage: 10 MEQ ER; 2 IN AM AT 6:00AM, 1 AT 2:00PM AND 1 AT 6:00 PM
  7. TYLENOL [Concomitant]
     Active Substance: ACETAMINOPHEN
     Dosage: 500 MG, UNK
  8. PROTONIX [Concomitant]
     Active Substance: PANTOPRAZOLE SODIUM
     Dosage: 40 MG, 1X/DAY, 6:00 AM MED
  9. MUPIROCIN. [Concomitant]
     Active Substance: MUPIROCIN
     Indication: FURUNCLE
     Dosage: 22 G, AS NEEDED
  10. ADVAIR DISKUS [Concomitant]
     Active Substance: FLUTICASONE PROPIONATE\SALMETEROL XINAFOATE
     Dosage: 250 MCG/50MCG, AS NEEDED
  11. COUMADIN [Concomitant]
     Active Substance: WARFARIN SODIUM
     Dosage: 5 MG, MONDAY
  12. REMERON [Concomitant]
     Active Substance: MIRTAZAPINE
     Dosage: UNK, DAILY (15MG; 1/2 IN PM) AT 10:00PM
  13. LIPITOR [Concomitant]
     Active Substance: ATORVASTATIN CALCIUM
     Dosage: 40 MG, 1X/DAY AT 10:00PM
  14. PROAIR HFA [Concomitant]
     Active Substance: ALBUTEROL SULFATE
     Indication: ASTHMA
     Dosage: 8.5 G, AS NEEDED
  15. LASIX [Concomitant]
     Active Substance: FUROSEMIDE
     Dosage: 80 MG, DAILY (1 IN AM) 6:00 AM AND 2:00PM MED
  16. ALDACTONE [Concomitant]
     Active Substance: SPIRONOLACTONE
     Dosage: UNK, DAILY (25MG;1/2 A DAY) 6:00AM MED
  17. REVATIO [Suspect]
     Active Substance: SILDENAFIL CITRATE
     Indication: CARDIAC DISORDER
     Dosage: 120 MG, 3X/DAY 3 AT 6:00AM, 3 AT 2:00PM AND 3 AT NIGHT

REACTIONS (11)
  - Cardiogenic shock [Fatal]
  - Respiratory failure [Fatal]
  - Pulmonary hypertension [Fatal]
  - Cardiac autonomic neuropathy [Fatal]
  - Product use issue [Unknown]
  - Cardiac failure [Unknown]
  - Acute respiratory distress syndrome [Fatal]
  - Malaise [Unknown]
  - Weight decreased [Unknown]
  - Cardiac disorder [Unknown]
  - Dyspnoea [Unknown]

NARRATIVE: CASE EVENT DATE: 20150811
